FAERS Safety Report 18235508 (Version 1)
Quarter: 2020Q3

REPORT INFORMATION
  Report Type: Spontaneous
  Country: FR (occurrence: FR)
  Receive Date: 20200905
  Receipt Date: 20200905
  Transmission Date: 20201103
  Serious: Yes (Death, Life-Threatening, Hospitalization)
  Sender: FDA-Public Use
  Company Number: FR-TEVA-2020-FR-1822734

PATIENT
  Age: 57 Year
  Sex: Male
  Weight: 85 kg

DRUGS (8)
  1. KEPPRA [Suspect]
     Active Substance: LEVETIRACETAM
     Indication: EPILEPSY
     Dosage: 4 GM
     Route: 042
     Dates: start: 20200804, end: 20200806
  2. TAZOCILLINE 4 G/500 MG, POUDRE POUR SOLUTION POUR PERFUSION [Suspect]
     Active Substance: PIPERACILLIN SODIUM\TAZOBACTAM SODIUM
     Indication: PNEUMONIA ASPIRATION
     Dosage: 12 GM
     Route: 042
     Dates: start: 20200804, end: 20200805
  3. SOLU?MEDROL [Suspect]
     Active Substance: METHYLPREDNISOLONE SODIUM SUCCINATE
     Indication: VASOGENIC CEREBRAL OEDEMA
     Dosage: 80 MG
     Route: 042
     Dates: start: 20200804, end: 20200806
  4. METHOTREXATE. [Suspect]
     Active Substance: METHOTREXATE
     Indication: B-CELL LYMPHOMA
     Dosage: 5400 MG
     Route: 042
     Dates: start: 20200804, end: 20200804
  5. LOVENOX [Concomitant]
     Active Substance: ENOXAPARIN SODIUM
     Dosage: UNIT DOSE: 4000 IU,
     Route: 042
     Dates: start: 20200727, end: 20200806
  6. ETOPOPHOS [Concomitant]
     Active Substance: ETOPOSIDE PHOSPHATE
     Dosage: UNIT DOSE: 180 MG,
     Route: 042
     Dates: start: 20200805, end: 20200805
  7. MABTHERA [Suspect]
     Active Substance: RITUXIMAB
     Indication: B-CELL LYMPHOMA
     Dosage: 570 MG
     Route: 042
     Dates: start: 20200804, end: 20200804
  8. DIPRIVAN [Suspect]
     Active Substance: PROPOFOL
     Indication: LIGHT ANAESTHESIA
     Dosage: 200 MG
     Route: 042
     Dates: start: 20200804, end: 20200805

REACTIONS (3)
  - Acute kidney injury [Fatal]
  - Condition aggravated [Fatal]
  - Neurological decompensation [Fatal]

NARRATIVE: CASE EVENT DATE: 20200805
